FAERS Safety Report 23808925 (Version 3)
Quarter: 2024Q2

REPORT INFORMATION
  Report Type: Spontaneous
  Country: JP (occurrence: JP)
  Receive Date: 20240502
  Receipt Date: 20240515
  Transmission Date: 20240716
  Serious: Yes (Hospitalization)
  Sender: FDA-Public Use
  Company Number: JP-JNJFOC-20240500078

PATIENT
  Age: 87 Year
  Sex: Male

DRUGS (2)
  1. ZYTIGA [Suspect]
     Active Substance: ABIRATERONE ACETATE
     Indication: Product used for unknown indication
     Dosage: UPON AWAKENING, DOSE UNKNOWN
     Route: 048
     Dates: end: 20240329
  2. PREDONINE [Concomitant]
     Active Substance: PREDNISOLONE
     Dosage: UPON AWAKENING
     Route: 048

REACTIONS (2)
  - Hospitalisation [Unknown]
  - Blood potassium decreased [Unknown]
